FAERS Safety Report 6491984-9 (Version None)
Quarter: 2009Q4

REPORT INFORMATION
  Report Type: 
  Country: None (occurrence: None)
  Receive Date: 20091208
  Receipt Date: 20091128
  Transmission Date: 20100525
  Serious: Yes (Other)
  Sender: FDA-Public Use
  Company Number: 1-20852534

PATIENT
  Age: 62 Year
  Sex: Male

DRUGS (2)
  1. MINOCYCLINE (MANUFACTURER NOT REPORTED) [Suspect]
     Indication: IMPETIGO
     Dosage: 100 MG DAILY, UNKNOWN
  2. MINOCYCLINE (MANUFACTURER NOT REPORTED) [Suspect]
     Indication: SKIN NODULE
     Dosage: 100 MG DAILY, UNKNOWN

REACTIONS (5)
  - COGNITIVE DISORDER [None]
  - CONFUSIONAL STATE [None]
  - DRUG HYPERSENSITIVITY [None]
  - EOSINOPHIL COUNT INCREASED [None]
  - WHITE BLOOD CELL COUNT INCREASED [None]
